FAERS Safety Report 15141205 (Version 2)
Quarter: 2019Q3

REPORT INFORMATION
  Report Type: Spontaneous
  Country: US (occurrence: US)
  Receive Date: 20180713
  Receipt Date: 20190709
  Transmission Date: 20191004
  Serious: No
  Sender: FDA-Public Use
  Company Number: US-ASTELLAS-2018US029659

PATIENT
  Sex: Female

DRUGS (1)
  1. MYRBETRIQ [Suspect]
     Active Substance: MIRABEGRON
     Indication: HYPERTONIC BLADDER
     Dosage: 25 MG, EVERY OTHER DAY (TAKING IT EVERY OTHER DAY)
     Route: 048
     Dates: start: 2015

REACTIONS (3)
  - Inappropriate schedule of product administration [Unknown]
  - Treatment noncompliance [Unknown]
  - Therapeutic response unexpected [Unknown]
